FAERS Safety Report 5213124-6 (Version None)
Quarter: 2007Q1

REPORT INFORMATION
  Report Type: 
  Country: None (occurrence: None)
  Receive Date: 20070119
  Receipt Date: 20070110
  Transmission Date: 20070707
  Serious: Yes (Other)
  Sender: FDA-Public Use
  Company Number: ZA-ROCHE-478093

PATIENT
  Age: 22 Year
  Sex: Female

DRUGS (2)
  1. ROACCUTANE [Suspect]
     Route: 048
  2. ROACCUTANE [Suspect]
     Dosage: STARTED ON A LOWER DOSE.
     Route: 048

REACTIONS (3)
  - EYE PAIN [None]
  - HORDEOLUM [None]
  - ULCERATIVE KERATITIS [None]
